FAERS Safety Report 19893104 (Version 1)
Quarter: 2021Q3

REPORT INFORMATION
  Report Type: Report from Study
  Country: CO (occurrence: CO)
  Receive Date: 20210929
  Receipt Date: 20210929
  Transmission Date: 20211014
  Serious: Yes (Other)
  Sender: FDA-Public Use
  Company Number: CO-SA-2021SA305087

PATIENT
  Age: 56 Year
  Sex: Female

DRUGS (2)
  1. TERIFLUNOMIDE. [Suspect]
     Active Substance: TERIFLUNOMIDE
     Indication: MULTIPLE SCLEROSIS
     Dosage: 14 MG, QD
     Route: 048
     Dates: start: 20171103
  2. B?COMPLEX [VITAMIN B NOS] [Concomitant]
     Active Substance: VITAMINS
     Indication: SPINAL PAIN
     Dosage: UNK

REACTIONS (12)
  - Headache [Recovering/Resolving]
  - Anxiety [Unknown]
  - Feeding disorder [Recovering/Resolving]
  - Discomfort [Recovered/Resolved]
  - Suicidal ideation [Recovering/Resolving]
  - Crying [Recovering/Resolving]
  - Mental disorder [Not Recovered/Not Resolved]
  - Fear of falling [Unknown]
  - Seizure [Recovered/Resolved]
  - Mood altered [Recovering/Resolving]
  - Product dose omission issue [Unknown]
  - Weight decreased [Recovering/Resolving]

NARRATIVE: CASE EVENT DATE: 202003
